FAERS Safety Report 13593618 (Version 2)
Quarter: 2017Q2

REPORT INFORMATION
  Report Type: Spontaneous
  Country: RO (occurrence: RO)
  Receive Date: 20170530
  Receipt Date: 20170602
  Transmission Date: 20170830
  Serious: Yes (Death, Other)
  Sender: FDA-Public Use
  Company Number: RO-ASTRAZENECA-2017SE56018

PATIENT
  Age: 48 Year
  Sex: Male
  Weight: 128 kg

DRUGS (2)
  1. FORXIGA [Suspect]
     Active Substance: DAPAGLIFLOZIN
     Indication: TYPE 2 DIABETES MELLITUS
     Route: 048
     Dates: start: 201606
  2. MIXTARD INSULIN [Concomitant]
     Active Substance: INSULIN HUMAN
     Dates: start: 201606

REACTIONS (2)
  - Myocardial infarction [Fatal]
  - Diabetes mellitus inadequate control [Unknown]

NARRATIVE: CASE EVENT DATE: 20170509
